FAERS Safety Report 18089860 (Version 1)
Quarter: 2020Q3

REPORT INFORMATION
  Report Type: Spontaneous
  Country: AU (occurrence: AU)
  Receive Date: 20200729
  Receipt Date: 20200729
  Transmission Date: 20201103
  Serious: Yes (Other)
  Sender: FDA-Public Use
  Company Number: AU-NOVOPROD-742451

PATIENT
  Sex: Male

DRUGS (3)
  1. NOVOMIX 30 [Suspect]
     Active Substance: INSULIN ASPART
     Dosage: EXTRA DOSE (30 UNITS EVENING AND 20 UNITS NIGHT)
     Route: 058
  2. NOVOMIX 30 [Suspect]
     Active Substance: INSULIN ASPART
     Dosage: 30 IU, TID
     Route: 058
  3. NOVOMIX 30 [Suspect]
     Active Substance: INSULIN ASPART
     Indication: DIABETES MELLITUS
     Dosage: 30 IU, BID
     Route: 058

REACTIONS (4)
  - Neoplasm malignant [Unknown]
  - Hepatic infection [Unknown]
  - Hyperglycaemia [Not Recovered/Not Resolved]
  - Urinary tract infection [Unknown]
